FAERS Safety Report 16221051 (Version 1)
Quarter: 2019Q2

REPORT INFORMATION
  Report Type: Report from Study
  Country: None (occurrence: US)
  Receive Date: 20190421
  Receipt Date: 20190421
  Transmission Date: 20190711
  Serious: Yes (Other)
  Sender: FDA-Public Use
  Company Number: US-ABBVIE-19K-163-2700232-00

PATIENT
  Sex: Male

DRUGS (2)
  1. HUMIRA [Suspect]
     Active Substance: ADALIMUMAB
     Indication: COLITIS ULCERATIVE
     Route: 058
  2. HUMIRA [Suspect]
     Active Substance: ADALIMUMAB
     Route: 058

REACTIONS (10)
  - Catheterisation cardiac [Recovered/Resolved]
  - Diabetes mellitus [Unknown]
  - Headache [Unknown]
  - Coronary arterial stent insertion [Recovered/Resolved]
  - Constipation [Unknown]
  - Somnolence [Unknown]
  - Depression [Unknown]
  - Nasopharyngitis [Recovering/Resolving]
  - Vertigo [Unknown]
  - Haematochezia [Unknown]
